FAERS Safety Report 5680515-9 (Version None)
Quarter: 2008Q1

REPORT INFORMATION
  Report Type: 
  Country: None (occurrence: None)
  Receive Date: 20080326
  Receipt Date: 20080317
  Transmission Date: 20080703
  Serious: Yes (Hospitalization)
  Sender: FDA-Public Use
  Company Number: AU-AMGEN-US263786

PATIENT
  Sex: Male

DRUGS (6)
  1. PANITUMUMAB [Suspect]
     Indication: SQUAMOUS CELL CARCINOMA
     Route: 042
     Dates: start: 20071029
  2. CISPLATIN [Concomitant]
     Dates: start: 20071029
  3. FLUOROURACIL [Concomitant]
     Dates: start: 20071029, end: 20080218
  4. SPAN-K [Concomitant]
  5. MAGMIN [Concomitant]
  6. OMEPRAZOLE [Concomitant]

REACTIONS (1)
  - CATHETER SITE INFECTION [None]
